FAERS Safety Report 6680173-0 (Version None)
Quarter: 2010Q2

REPORT INFORMATION
  Report Type: 
  Country: None (occurrence: None)
  Receive Date: 20100413
  Receipt Date: 20100331
  Transmission Date: 20101027
  Serious: Yes (Hospitalization, Other)
  Sender: FDA-Public Use
  Company Number: US-ELI_LILLY_AND_COMPANY-US201004001973

PATIENT
  Sex: Female

DRUGS (5)
  1. ZYPREXA [Suspect]
  2. XANAX [Concomitant]
  3. TRAZODONE [Concomitant]
  4. LITHIUM [Concomitant]
  5. LYRICA [Concomitant]

REACTIONS (28)
  - ABNORMAL DREAMS [None]
  - ANXIETY [None]
  - BONE PAIN [None]
  - CARDIAC DISORDER [None]
  - CHONDROPATHY [None]
  - COGNITIVE DISORDER [None]
  - CONFUSIONAL STATE [None]
  - CRYING [None]
  - DISLOCATION OF VERTEBRA [None]
  - DISSOCIATIVE DISORDER [None]
  - DYSLEXIA [None]
  - EMOTIONAL DISORDER [None]
  - FALL [None]
  - FURUNCLE [None]
  - GASTROINTESTINAL DISORDER [None]
  - HEAD DISCOMFORT [None]
  - HEAD INJURY [None]
  - HEADACHE [None]
  - HYPOTHYROIDISM [None]
  - INJURY [None]
  - JOINT DISLOCATION [None]
  - LOSS OF CONSCIOUSNESS [None]
  - NASAL CONGESTION [None]
  - NERVOUS SYSTEM DISORDER [None]
  - PANIC ATTACK [None]
  - PELVIC FRACTURE [None]
  - RHINORRHOEA [None]
  - TIC [None]
